FAERS Safety Report 21636216 (Version 1)
Quarter: 2022Q4

REPORT INFORMATION
  Report Type: Spontaneous
  Country: US (occurrence: US)
  Receive Date: 20221124
  Receipt Date: 20221124
  Transmission Date: 20230113
  Serious: No
  Sender: FDA-Public Use
  Company Number: US-JNJFOC-20221115539

PATIENT
  Sex: Male

DRUGS (2)
  1. MENS ROGAINE EXTRA STRENGTH [Suspect]
     Active Substance: MINOXIDIL
     Indication: Accidental exposure to product
     Route: 047
  2. MENS ROGAINE EXTRA STRENGTH [Suspect]
     Active Substance: MINOXIDIL
     Indication: Alopecia

REACTIONS (5)
  - Eye pain [Unknown]
  - Poor quality product administered [Unknown]
  - Accidental exposure to product [Unknown]
  - Product container issue [Unknown]
  - Product packaging quantity issue [Unknown]
